FAERS Safety Report 12246741 (Version 1)
Quarter: 2016Q2

REPORT INFORMATION
  Report Type: Spontaneous
  Country: FR (occurrence: FR)
  Receive Date: 20160407
  Receipt Date: 20160407
  Transmission Date: 20160815
  Serious: Yes (Other)
  Sender: FDA-Public Use
  Company Number: FR-SA-2016SA068990

PATIENT
  Age: 73 Year
  Sex: Female

DRUGS (8)
  1. KARDEGIC [Suspect]
     Active Substance: ASPIRIN LYSINE
     Route: 048
     Dates: end: 20040112
  2. DIMETANE EXPECTORANT [Suspect]
     Active Substance: BROMPHENIRAMINE MALEATE\GUAIFENESIN\PHENYLEPHRINE HYDROCHLORIDE\PHENYLPROPANOLAMINE HYDROCHLORIDE
     Route: 048
     Dates: end: 20040112
  3. SMECTA [Concomitant]
     Active Substance: MONTMORILLONITE
  4. MAXILASE [Suspect]
     Active Substance: PANCRELIPASE
     Route: 048
     Dates: end: 20040112
  5. LASILIX [Suspect]
     Active Substance: FUROSEMIDE
     Route: 048
     Dates: end: 20040112
  6. LOCABIOTAL [Suspect]
     Active Substance: FUSAFUNGINE
     Route: 065
     Dates: end: 20040112
  7. IMODIUM [Concomitant]
     Active Substance: LOPERAMIDE HYDROCHLORIDE
  8. TRIATEC [Suspect]
     Active Substance: RAMIPRIL
     Route: 048
     Dates: end: 20040112

REACTIONS (1)
  - Angioedema [Recovered/Resolved]

NARRATIVE: CASE EVENT DATE: 20040112
